FAERS Safety Report 14951549 (Version 1)
Quarter: 2018Q2

REPORT INFORMATION
  Report Type: Spontaneous
  Country: US (occurrence: US)
  Receive Date: 20180530
  Receipt Date: 20180530
  Transmission Date: 20180711
  Serious: No
  Sender: FDA-Public Use
  Company Number: US-MYLANLABS-2018M1030002

PATIENT
  Sex: Female
  Weight: 35 kg

DRUGS (1)
  1. FENTANYL TRANSDERMAL SYSTEM [Suspect]
     Active Substance: FENTANYL
     Indication: PAIN
     Dosage: 75 ?G, Q2D
     Route: 062

REACTIONS (3)
  - Withdrawal syndrome [Recovering/Resolving]
  - Influenza like illness [Recovering/Resolving]
  - Drug effect decreased [Unknown]
